FAERS Safety Report 9657727 (Version 1)
Quarter: 2013Q4

REPORT INFORMATION
  Report Type: Spontaneous
  Country: CH (occurrence: CH)
  Receive Date: 20131030
  Receipt Date: 20131030
  Transmission Date: 20140711
  Serious: Yes (Other)
  Sender: FDA-Public Use
  Company Number: CH-TEVA-439979ISR

PATIENT
  Sex: Female
  Weight: 1.55 kg

DRUGS (1)
  1. SIMVASTATIN [Suspect]
     Indication: HYPERLIPIDAEMIA
     Dosage: 40 MILLIGRAM DAILY;
     Route: 064
     Dates: end: 201303

REACTIONS (4)
  - Foetal growth restriction [Unknown]
  - Premature baby [Unknown]
  - Exposure during pregnancy [Recovered/Resolved]
  - Umbilical cord abnormality [Unknown]
